FAERS Safety Report 5828944-4 (Version None)
Quarter: 2008Q3

REPORT INFORMATION
  Report Type: 
  Country: None (occurrence: None)
  Receive Date: 20080731
  Receipt Date: 20080501
  Transmission Date: 20090109
  Serious: No
  Sender: FDA-Public Use
  Company Number: US-BAYER-200811765BCC

PATIENT
  Age: 73 Year
  Sex: Male
  Weight: 77 kg

DRUGS (5)
  1. ALEVE [Suspect]
     Indication: ARTHRITIS
     Route: 048
  2. EXCEDRIN (MIGRAINE) [Concomitant]
     Route: 048
  3. BAYER BACK AND BODY [Concomitant]
     Route: 048
  4. ONE A DAY ACTIVE [Concomitant]
     Route: 048
  5. CALTRATE [Concomitant]
     Route: 048

REACTIONS (1)
  - ARTHRALGIA [None]
